FAERS Safety Report 9852480 (Version 3)
Quarter: 2014Q2

REPORT INFORMATION
  Report Type: Spontaneous
  Country: IT (occurrence: IT)
  Receive Date: 20140129
  Receipt Date: 20140417
  Transmission Date: 20141212
  Serious: Yes (Hospitalization)
  Sender: FDA-Public Use
  Company Number: IT-BRISTOL-MYERS SQUIBB COMPANY-20059903

PATIENT
  Age: 40 Year
  Sex: Female

DRUGS (4)
  1. ABILIFY TABS 15 MG [Suspect]
     Dosage: THERAPY TO 16DEC13
     Route: 048
     Dates: start: 20131216
  2. DEPAKINE CHRONO [Suspect]
     Dosage: STRENGTH-500MG TABLETS.THERAPY TO 16DEC13
     Route: 048
     Dates: start: 20131216
  3. DELORAZEPAM [Suspect]
     Indication: DEPRESSION
     Dosage: TABLETS.THERAPY TO 16DEC13
     Route: 048
     Dates: start: 20131216
  4. PAROXETINE [Suspect]
     Indication: DEPRESSION
     Dosage: TABLETS.THERAPY TO 16DEC13
     Route: 048
     Dates: start: 20131216

REACTIONS (5)
  - Abdominal pain [Recovering/Resolving]
  - Urinary incontinence [Recovering/Resolving]
  - Sopor [Recovering/Resolving]
  - Drug abuse [Recovering/Resolving]
  - Faecal incontinence [Recovering/Resolving]
